FAERS Safety Report 9698484 (Version 1)
Quarter: 2013Q4

REPORT INFORMATION
  Report Type: Spontaneous
  Country: AU (occurrence: AU)
  Receive Date: 20131120
  Receipt Date: 20131120
  Transmission Date: 20140711
  Serious: Yes (Other)
  Sender: FDA-Public Use
  Company Number: AU-JNJFOC-20131107861

PATIENT
  Sex: Female

DRUGS (4)
  1. INFLIXIMAB, RECOMBINANT [Suspect]
     Indication: FEMALE GENITAL TRACT FISTULA
     Route: 042
  2. INFLIXIMAB, RECOMBINANT [Suspect]
     Indication: CROHN^S DISEASE
     Route: 042
  3. AZATHIOPRINE [Suspect]
     Indication: FEMALE GENITAL TRACT FISTULA
     Route: 065
  4. AZATHIOPRINE [Suspect]
     Indication: CROHN^S DISEASE
     Route: 065

REACTIONS (3)
  - Intestinal adenocarcinoma [Unknown]
  - Intestinal obstruction [Unknown]
  - Drug ineffective [Unknown]
